FAERS Safety Report 8271764-4 (Version None)
Quarter: 2012Q2

REPORT INFORMATION
  Report Type: 
  Country: None (occurrence: None)
  Receive Date: 20120410
  Receipt Date: 20120402
  Transmission Date: 20120825
  Serious: Yes (Death)
  Sender: FDA-Public Use
  Company Number: US-CELGENEUS-163-21660-12032247

PATIENT
  Sex: Female

DRUGS (2)
  1. ABRAXANE [Suspect]
     Route: 065
  2. MORPHINE [Concomitant]
     Indication: PAIN
     Route: 048
     Dates: start: 20120206

REACTIONS (1)
  - BREAST CANCER METASTATIC [None]
